FAERS Safety Report 8572476-X (Version None)
Quarter: 2012Q3

REPORT INFORMATION
  Report Type: 
  Country: None (occurrence: None)
  Receive Date: 20120806
  Receipt Date: 20120727
  Transmission Date: 20120928
  Serious: Yes (Hospitalization, Other)
  Sender: FDA-Public Use
  Company Number: US-AMGEN-USANI2012047396

PATIENT
  Age: 7 Day
  Sex: Male

DRUGS (25)
  1. ETANERCEPT [Suspect]
     Dosage: 50 MG, QWK
     Route: 064
     Dates: start: 20111111, end: 20120714
  2. MULTI-VITAMINS [Concomitant]
     Dosage: UNK UNK, QD
     Route: 064
     Dates: start: 20111111, end: 20120714
  3. CHORIONIC GONADOTROPIN [Concomitant]
     Dosage: UNK UNK, QD
     Route: 064
     Dates: start: 20111123, end: 20111123
  4. ZYRTEC [Concomitant]
     Dosage: 10 MG, QD
     Route: 064
     Dates: start: 20111111, end: 20120714
  5. RELAFEN [Concomitant]
     Dosage: 2000 MG, QD
     Route: 064
     Dates: start: 20111111, end: 20111119
  6. OMEPRAZOLE [Concomitant]
     Dosage: UNK UNK, QD
     Route: 064
     Dates: start: 20111111, end: 20120714
  7. MACROBID [Concomitant]
     Dosage: UNK UNK, QD
     Route: 064
     Dates: start: 20120326, end: 20120402
  8. FLAGYL [Concomitant]
     Dosage: 500 MG, BID
     Route: 064
     Dates: start: 20120604, end: 20120609
  9. PROGESTERONE [Concomitant]
     Dosage: 250 MG, QWK
     Route: 064
     Dates: start: 20111117, end: 20120629
  10. ZITHROMAX [Concomitant]
     Dosage: UNK UNK, QD
     Route: 064
     Dates: start: 20120326, end: 20120329
  11. CALCIUM CARBONATE [Concomitant]
     Dosage: UNK UNK, QD
     Route: 064
     Dates: start: 20120319, end: 20120714
  12. MAGNESIUM [Concomitant]
     Dosage: UNK UNK, QD
     Route: 064
     Dates: start: 20120603, end: 20120603
  13. TERBUTALINE [Concomitant]
     Dosage: UNK UNK, QD
     Route: 064
     Dates: start: 20120603, end: 20120620
  14. ETANERCEPT [Suspect]
     Dosage: 50 MG, QWK
     Route: 064
     Dates: start: 20111111, end: 20120714
  15. PREDNISONE [Concomitant]
     Dosage: 10 MG, QD
     Route: 064
     Dates: start: 20111111, end: 20120714
  16. EXTRA STRENGTH TYLENOL [Concomitant]
     Dosage: 3 G, QD
     Route: 064
     Dates: start: 20111111, end: 20120714
  17. VICODIN [Concomitant]
     Dosage: 30 MG, QD
     Route: 064
     Dates: start: 20111111, end: 20120616
  18. FLUTICASONE PROPIONATE [Concomitant]
     Dosage: UNK UNK, QD
     Dates: start: 20120326, end: 20120330
  19. IRON [Concomitant]
     Dosage: 325 MG, BID
     Route: 064
     Dates: start: 20120603, end: 20120714
  20. FOLIC ACID [Concomitant]
     Dosage: 1 MG, QD
     Route: 064
     Dates: start: 20120319, end: 20120714
  21. AMOXICILLIN [Concomitant]
     Dosage: 1000 MG, QD
     Route: 064
     Dates: start: 20120409, end: 20120413
  22. BETAMETHASONE [Concomitant]
     Dosage: UNK
     Route: 064
     Dates: start: 20120603, end: 20120604
  23. CLOMID [Concomitant]
     Dosage: UNK UNK, QD
     Dates: start: 20111115, end: 20111115
  24. ASPIRIN [Concomitant]
     Dosage: 81 MG, QD
     Route: 064
     Dates: start: 20111111, end: 20111203
  25. XOPENEX HFA [Concomitant]
     Dosage: UNK UNK, QD
     Route: 064
     Dates: start: 20120326, end: 20120330

REACTIONS (4)
  - RESPIRATORY DISTRESS [None]
  - MATERNAL DRUGS AFFECTING FOETUS [None]
  - THROMBOCYTOPENIA [None]
  - MENINGITIS NEONATAL [None]
